FAERS Safety Report 24300735 (Version 3)
Quarter: 2025Q1

REPORT INFORMATION
  Report Type: Other
  Country: CA (occurrence: CA)
  Receive Date: 20240910
  Receipt Date: 20250221
  Transmission Date: 20250409
  Serious: No
  Sender: TOLMAR
  Company Number: CA-TOLMAR, INC.-24CA052097

PATIENT
  Age: 61 Year
  Sex: Male

DRUGS (6)
  1. ELIGARD [Suspect]
     Active Substance: LEUPROLIDE ACETATE
     Indication: Prostate cancer
     Dosage: 22.5 MILLIGRAM, Q 3 MONTH
     Route: 058
     Dates: start: 20240821
  2. ELIGARD [Suspect]
     Active Substance: LEUPROLIDE ACETATE
     Dosage: 22.5 MILLIGRAM, Q 3 MONTH
     Route: 058
     Dates: start: 20241112
  3. ELIGARD [Suspect]
     Active Substance: LEUPROLIDE ACETATE
     Dosage: 22.5 MILLIGRAM, Q 3 MONTH
     Route: 058
     Dates: start: 20250129
  4. ELIGARD [Suspect]
     Active Substance: LEUPROLIDE ACETATE
     Indication: Prostate cancer
  5. RADIATION THERAPY [Suspect]
     Active Substance: RADIATION THERAPY
     Indication: Product used for unknown indication
     Dates: end: 20250120
  6. UNSPECIFIED INGREDIENT [Concomitant]
     Active Substance: UNSPECIFIED INGREDIENT
     Indication: Product used for unknown indication
     Dates: start: 20241112

REACTIONS (6)
  - Injection site haemorrhage [Recovered/Resolved]
  - Diarrhoea [Not Recovered/Not Resolved]
  - Asthenia [Unknown]
  - Fatigue [Unknown]
  - Fatigue [Unknown]
  - Nocturia [Not Recovered/Not Resolved]

NARRATIVE: CASE EVENT DATE: 20240821
